FAERS Safety Report 6597764-8 (Version None)
Quarter: 2010Q1

REPORT INFORMATION
  Report Type: 
  Country: None (occurrence: None)
  Receive Date: 20100223
  Receipt Date: 20100215
  Transmission Date: 20100710
  Serious: Yes (Other)
  Sender: FDA-Public Use
  Company Number: JP-MERCK-1002USA00911

PATIENT
  Age: 95 Year
  Sex: Male

DRUGS (13)
  1. JANUVIA [Suspect]
     Indication: HYPERGLYCAEMIA
     Dosage: DIVIDED DOSE FREQUENCY U
     Route: 048
     Dates: start: 20100122, end: 20100125
  2. GLIMICRON [Suspect]
     Indication: DIABETES MELLITUS
     Route: 048
  3. LENDORMIN [Concomitant]
     Indication: INSOMNIA
     Route: 048
  4. PURSENNID [Concomitant]
     Indication: CONSTIPATION
     Route: 048
  5. ALOSENN [Concomitant]
     Indication: CONSTIPATION
     Route: 048
  6. NORVASC [Concomitant]
     Indication: HYPERTENSION
     Route: 048
  7. HARNAL [Concomitant]
     Indication: BENIGN PROSTATIC HYPERPLASIA
     Route: 048
  8. SIGMART [Concomitant]
     Indication: ANGINA PECTORIS
     Route: 048
  9. LOXONIN [Concomitant]
     Indication: BACK PAIN
     Route: 048
  10. MUCOSTA [Concomitant]
     Indication: BRONCHITIS
     Route: 048
  11. MAGMITT [Concomitant]
     Indication: CONSTIPATION
     Route: 048
  12. LASIX [Concomitant]
     Indication: OEDEMA PERIPHERAL
     Route: 048
  13. DASEN [Concomitant]
     Indication: BRONCHITIS
     Route: 048

REACTIONS (1)
  - HYPOGLYCAEMIA [None]
